FAERS Safety Report 24148549 (Version 3)
Quarter: 2025Q1

REPORT INFORMATION
  Report Type: Spontaneous
  Country: US (occurrence: US)
  Receive Date: 20240729
  Receipt Date: 20250107
  Transmission Date: 20250409
  Serious: Yes (Other)
  Sender: GLAXOSMITHKLINE
  Company Number: US-GSKCCFUS-Case-02060017_AE-113990

PATIENT
  Age: 51 Year
  Sex: Female

DRUGS (3)
  1. BENLYSTA [Suspect]
     Active Substance: BELIMUMAB
     Indication: Systemic lupus erythematosus
     Dates: start: 202309
  2. BENLYSTA [Suspect]
     Active Substance: BELIMUMAB
     Dates: start: 20231130
  3. IRON [Suspect]
     Active Substance: IRON
     Indication: Product used for unknown indication
     Dates: start: 202407

REACTIONS (13)
  - Cataract [Unknown]
  - Salpingectomy [Unknown]
  - Asthma [Unknown]
  - Injection site swelling [Unknown]
  - Injection site rash [Unknown]
  - Injection site pruritus [Unknown]
  - Urticaria [Unknown]
  - Rash [Recovered/Resolved]
  - Blood glucose increased [Unknown]
  - Hormone level abnormal [Unknown]
  - Weight decreased [Unknown]
  - Libido decreased [Unknown]
  - Skin atrophy [Unknown]

NARRATIVE: CASE EVENT DATE: 20240201
